FAERS Safety Report 8219737-1 (Version None)
Quarter: 2012Q1

REPORT INFORMATION
  Report Type: 
  Country: None (occurrence: None)
  Receive Date: 20120319
  Receipt Date: 20120308
  Transmission Date: 20120608
  Serious: Yes (Hospitalization, Other)
  Sender: FDA-Public Use
  Company Number: US-ASTRAZENECA-2010SE35750

PATIENT
  Age: 22758 Day
  Sex: Female

DRUGS (15)
  1. LIPITOR [Concomitant]
  2. TRIAMTERENE AND HYDROCHLOROTHIAZIDE [Concomitant]
  3. PLAVIX [Concomitant]
  4. ALPRAZOLAM [Concomitant]
     Dosage: AM AND PM
  5. TOPROL-XL [Suspect]
     Indication: ACUTE CORONARY SYNDROME
     Route: 048
  6. LEVOTHYROXINE SODIUM [Concomitant]
  7. LISINOPRIL AND HYDROCHLOROTHIAZIDE [Suspect]
     Route: 048
  8. ASPIRIN [Concomitant]
  9. LUTEIN [Concomitant]
  10. LUCOPENE [Concomitant]
  11. COQ 10 [Concomitant]
  12. PLENDIL [Suspect]
     Route: 048
  13. ASPIRIN [Concomitant]
  14. GLIPIZIDE [Concomitant]
  15. ZANTAC [Concomitant]
     Dosage: 150 MGS AM AND PM

REACTIONS (8)
  - CARDIAC ENZYMES INCREASED [None]
  - ECG SIGNS OF MYOCARDIAL ISCHAEMIA [None]
  - EJECTION FRACTION DECREASED [None]
  - MYOCARDIAL INFARCTION [None]
  - DRUG HYPERSENSITIVITY [None]
  - DRUG INEFFECTIVE [None]
  - ACUTE CORONARY SYNDROME [None]
  - CARDIAC DISORDER [None]
